FAERS Safety Report 21971455 (Version 1)
Quarter: 2023Q1

REPORT INFORMATION
  Report Type: Spontaneous
  Country: US (occurrence: US)
  Receive Date: 20230209
  Receipt Date: 20230209
  Transmission Date: 20230418
  Serious: Yes (Death, Other)
  Sender: FDA-Public Use
  Company Number: US-AMGEN-USASP2023022068

PATIENT

DRUGS (2)
  1. XGEVA [Suspect]
     Active Substance: DENOSUMAB
     Indication: Malignant melanoma
     Dosage: 120 MILLIGRAM (ON DAYS 1, 8 AND 21)
     Route: 058
  2. NIVOLUMAB [Concomitant]
     Active Substance: NIVOLUMAB
     Indication: Malignant melanoma
     Dosage: 480 MILLIGRAM
     Route: 040

REACTIONS (7)
  - Death [Fatal]
  - Pneumonitis [Unknown]
  - Fatigue [Unknown]
  - Arthralgia [Unknown]
  - Colitis [Unknown]
  - Tumour pain [Unknown]
  - Off label use [Unknown]
